FAERS Safety Report 10912107 (Version 2)
Quarter: 2015Q2

REPORT INFORMATION
  Report Type: Spontaneous
  Country: US (occurrence: US)
  Receive Date: 20150313
  Receipt Date: 20150402
  Transmission Date: 20150821
  Serious: Yes (Death, Hospitalization)
  Sender: FDA-Public Use
  Company Number: US-JNJFOC-20150300390

PATIENT
  Age: 67 Year
  Sex: Male
  Weight: 69.85 kg

DRUGS (8)
  1. PHENERGAN [Concomitant]
     Active Substance: PROMETHAZINE HYDROCHLORIDE
     Indication: CHEMOTHERAPY
     Route: 065
  2. BISACODYL. [Concomitant]
     Active Substance: BISACODYL
     Indication: CONSTIPATION
     Route: 065
  3. XARELTO [Suspect]
     Active Substance: RIVAROXABAN
     Indication: THROMBOSIS
     Route: 048
     Dates: start: 2014
  4. FOLIC ACID. [Concomitant]
     Active Substance: FOLIC ACID
     Indication: CHEMOTHERAPY
     Route: 065
  5. XARELTO [Suspect]
     Active Substance: RIVAROXABAN
     Indication: THROMBOSIS
     Route: 048
     Dates: start: 201408
  6. PRILOSEC [Concomitant]
     Active Substance: OMEPRAZOLE MAGNESIUM
     Indication: GASTROOESOPHAGEAL REFLUX DISEASE
     Route: 065
  7. VITAMIN D3 [Concomitant]
     Active Substance: CHOLECALCIFEROL
     Route: 065
  8. SIMVASTATIN. [Concomitant]
     Active Substance: SIMVASTATIN
     Indication: THROMBOSIS
     Route: 065

REACTIONS (5)
  - Transient ischaemic attack [Not Recovered/Not Resolved]
  - Decreased appetite [Unknown]
  - Inappropriate schedule of drug administration [Unknown]
  - Adenocarcinoma [Fatal]
  - Abnormal loss of weight [Unknown]

NARRATIVE: CASE EVENT DATE: 2014
